FAERS Safety Report 12966477 (Version 2)
Quarter: 2016Q4

REPORT INFORMATION
  Report Type: Spontaneous
  Country: AT (occurrence: AT)
  Receive Date: 20161122
  Receipt Date: 20161226
  Transmission Date: 20170207
  Serious: Yes (Other)
  Sender: FDA-Public Use
  Company Number: AT-ASTRAZENECA-2016SF23849

PATIENT
  Age: 66 Year
  Sex: Male
  Weight: 67 kg

DRUGS (2)
  1. EKLIRA [Suspect]
     Active Substance: ACLIDINIUM BROMIDE
     Route: 055
     Dates: start: 201310, end: 201505
  2. NOVO-SALBUTAMOL [Concomitant]
     Dosage: 2 PUFFS AS NEEDED
     Dates: start: 201310

REACTIONS (2)
  - Dyspnoea [Unknown]
  - Peripheral arterial occlusive disease [Unknown]

NARRATIVE: CASE EVENT DATE: 201501
